FAERS Safety Report 9661105 (Version 2)
Quarter: 2014Q2

REPORT INFORMATION
  Report Type: Spontaneous
  Country: DK (occurrence: CA)
  Receive Date: 20131031
  Receipt Date: 20140407
  Transmission Date: 20141212
  Serious: Yes (Life-Threatening, Hospitalization, Disabling, Other)
  Sender: FDA-Public Use
  Company Number: CA-FRI-1000050650

PATIENT
  Age: 83 Year
  Sex: Female
  Weight: 70 kg

DRUGS (7)
  1. CELEXA [Suspect]
     Indication: ANTIDEPRESSANT THERAPY
     Dates: start: 20130415, end: 20130503
  2. EXELON [Concomitant]
     Dates: start: 20130415, end: 20130503
  3. LASIX [Concomitant]
  4. LOPRESOR [Concomitant]
  5. SENOKOT [Concomitant]
  6. SYNTHROID [Concomitant]
  7. ANTIDIABETICS [Concomitant]
     Route: 048

REACTIONS (13)
  - Cardiac arrest [Not Recovered/Not Resolved]
  - Epilepsy [Not Recovered/Not Resolved]
  - Confusional state [Not Recovered/Not Resolved]
  - Delirium [Not Recovered/Not Resolved]
  - Paralysis [Not Recovered/Not Resolved]
  - Hallucination [Not Recovered/Not Resolved]
  - Blindness [Not Recovered/Not Resolved]
  - Mydriasis [Not Recovered/Not Resolved]
  - Aphasia [Not Recovered/Not Resolved]
  - Asthenia [Not Recovered/Not Resolved]
  - Headache [Not Recovered/Not Resolved]
  - Incontinence [Not Recovered/Not Resolved]
  - Vomiting [Not Recovered/Not Resolved]
